FAERS Safety Report 9319876 (Version 4)
Quarter: 2013Q4

REPORT INFORMATION
  Report Type: Spontaneous
  Country: DE (occurrence: DE)
  Receive Date: 20130530
  Receipt Date: 20131129
  Transmission Date: 20140711
  Serious: Yes (Hospitalization, Other)
  Sender: FDA-Public Use
  Company Number: DE-JNJFOC-20130518825

PATIENT
  Age: 66 Year
  Sex: Male
  Weight: 86 kg

DRUGS (6)
  1. ZYTIGA [Suspect]
     Indication: PROSTATE CANCER
     Route: 048
     Dates: start: 20130222, end: 20130626
  2. FIRMAGON [Concomitant]
     Route: 001
  3. TAMSUBLOCK [Concomitant]
     Route: 065
  4. PREDNISOLON [Concomitant]
     Route: 065
  5. BISOPROLOL [Concomitant]
     Route: 065
  6. PREDNISOLONE [Concomitant]
     Dosage: 2 X 5 MG
     Route: 065
     Dates: start: 20130222, end: 20130525

REACTIONS (6)
  - Renal failure acute [Recovered/Resolved]
  - Renal cyst [Recovered/Resolved]
  - Arrhythmia [Recovered/Resolved]
  - Calculus bladder [Recovered/Resolved]
  - Hydronephrosis [Recovered/Resolved]
  - Fatigue [Unknown]
